FAERS Safety Report 5951567-3 (Version None)
Quarter: 2008Q4

REPORT INFORMATION
  Report Type: 
  Country: None (occurrence: None)
  Receive Date: 20081113
  Receipt Date: 20081105
  Transmission Date: 20090506
  Serious: Yes (Other)
  Sender: FDA-Public Use
  Company Number: PHHY2008JP27521

PATIENT
  Age: 71 Year
  Sex: Male

DRUGS (4)
  1. COMTAN [Suspect]
     Indication: PARKINSON'S DISEASE
     Dosage: 2 DF
     Route: 048
     Dates: start: 20081009, end: 20081029
  2. FERROMIA [Suspect]
     Dosage: UNK
     Route: 048
     Dates: start: 20081009, end: 20081029
  3. METHYLCOBALAMIN [Suspect]
     Dosage: UNK
     Route: 048
     Dates: end: 20081029
  4. CARBIDOPA + LEVODOPA [Concomitant]
     Dosage: 22.5
     Route: 048

REACTIONS (1)
  - RASH GENERALISED [None]
